FAERS Safety Report 7061425-1 (Version None)
Quarter: 2010Q4

REPORT INFORMATION
  Report Type: 
  Country: None (occurrence: None)
  Receive Date: 20101026
  Receipt Date: 20101015
  Transmission Date: 20110411
  Serious: Yes (Hospitalization)
  Sender: FDA-Public Use
  Company Number: DE-ALEXION-A201001291

PATIENT

DRUGS (1)
  1. SOLIRIS [Suspect]
     Indication: PAROXYSMAL NOCTURNAL HAEMOGLOBINURIA
     Dosage: 600 UNK, UNK
     Route: 042
     Dates: start: 20100301

REACTIONS (3)
  - ANAL ABSCESS [None]
  - INFECTION [None]
  - PLATELET COUNT DECREASED [None]
